FAERS Safety Report 10649983 (Version 1)
Quarter: 2014Q4

REPORT INFORMATION
  Report Type: Spontaneous
  Country: US (occurrence: US)
  Receive Date: 20141212
  Receipt Date: 20141212
  Transmission Date: 20150529
  Serious: No
  Sender: FDA-Public Use
  Company Number: US-PFIZER INC-2014340577

PATIENT
  Age: 44 Year
  Sex: Female
  Weight: 54 kg

DRUGS (1)
  1. LYRICA [Suspect]
     Active Substance: PREGABALIN
     Dosage: 75 MG, 1 CAPSULE TWICE A DAY BY ORAL ROUTE FOR 90 DAYS
     Route: 048

REACTIONS (2)
  - Impaired work ability [Unknown]
  - Back disorder [Unknown]
